FAERS Safety Report 24766748 (Version 2)
Quarter: 2025Q1

REPORT INFORMATION
  Report Type: Spontaneous
  Country: US (occurrence: US)
  Receive Date: 20241223
  Receipt Date: 20250124
  Transmission Date: 20250409
  Serious: Yes (Life-Threatening, Hospitalization, Other)
  Sender: AMGEN
  Company Number: US-AMGEN-USASP2024247407

PATIENT
  Age: 70 Year
  Sex: Male
  Weight: 83 kg

DRUGS (16)
  1. XGEVA [Suspect]
     Active Substance: DENOSUMAB
     Indication: Product used for unknown indication
     Route: 065
     Dates: start: 20211217, end: 20240925
  2. PREDNISONE [Suspect]
     Active Substance: PREDNISONE
     Indication: Hormone-refractory prostate cancer
     Dosage: 5 MILLIGRAM, BID
     Route: 048
     Dates: start: 20241023
  3. PREDNISONE [Suspect]
     Active Substance: PREDNISONE
     Dosage: 5 MILLIGRAM, BID
     Route: 048
     Dates: start: 20241024, end: 20241206
  4. NEULASTA [Suspect]
     Active Substance: PEGFILGRASTIM
     Indication: Neutrophil count decreased
     Route: 065
     Dates: start: 20241122
  5. LORIGERLIMAB [Suspect]
     Active Substance: LORIGERLIMAB
     Indication: Hormone-refractory prostate cancer
     Dosage: 6 MILLIGRAM/KILOGRAM, Q3WK (CYCLE 1, DAY 1)
     Route: 040
     Dates: start: 20241023, end: 20241023
  6. LORIGERLIMAB [Suspect]
     Active Substance: LORIGERLIMAB
     Dosage: 6 MILLIGRAM/KILOGRAM, Q3WK (CYCLE 2, DAY 1)
     Route: 040
     Dates: start: 20241113, end: 20241113
  7. DOCETAXEL [Suspect]
     Active Substance: DOCETAXEL
     Indication: Hormone-refractory prostate cancer
     Dosage: 75 MILLIGRAM/SQ. METER, Q3WK
     Route: 040
     Dates: start: 20241023, end: 20241023
  8. DOCETAXEL [Suspect]
     Active Substance: DOCETAXEL
     Dosage: 75 MILLIGRAM/SQ. METER, Q3WK
     Route: 040
     Dates: start: 20241113, end: 20241113
  9. CHOLECALCIFEROL [Concomitant]
     Active Substance: CHOLECALCIFEROL
     Dates: start: 20200624
  10. LEUPROLIDE [Concomitant]
     Active Substance: LEUPROLIDE
     Dates: start: 20140307
  11. PROCHLORPERAZINE [Concomitant]
     Active Substance: PROCHLORPERAZINE
     Dates: start: 20241107
  12. VENLAFAXINE [Concomitant]
     Active Substance: VENLAFAXINE HYDROCHLORIDE
     Dates: start: 20190906
  13. POTASSIUM CHLORIDE [Concomitant]
     Active Substance: POTASSIUM CHLORIDE
     Dates: start: 20241111
  14. CARDIZEM [Concomitant]
     Active Substance: DILTIAZEM HYDROCHLORIDE
     Dates: end: 20241126
  15. LOVENOX [Concomitant]
     Active Substance: ENOXAPARIN SODIUM
  16. LACTATED RINGERS SOLUTION [Concomitant]
     Active Substance: CALCIUM CHLORIDE\POTASSIUM CHLORIDE\SODIUM CHLORIDE\SODIUM LACTATE

REACTIONS (11)
  - Hypotension [Recovered/Resolved]
  - Osteonecrosis of jaw [Recovering/Resolving]
  - Atrial fibrillation [Recovered/Resolved]
  - Hyperthyroidism [Recovered/Resolved]
  - Hypokalaemia [Not Recovered/Not Resolved]
  - Fall [Unknown]
  - Neutrophil count decreased [Unknown]
  - Hypophosphataemia [Recovered/Resolved]
  - Constipation [Not Recovered/Not Resolved]
  - Swelling face [Unknown]
  - Off label use [Unknown]

NARRATIVE: CASE EVENT DATE: 20230412
